FAERS Safety Report 22389037 (Version 1)
Quarter: 2023Q2

REPORT INFORMATION
  Report Type: Spontaneous
  Country: US (occurrence: US)
  Receive Date: 20230531
  Receipt Date: 20230531
  Transmission Date: 20230722
  Serious: Yes (Hospitalization)
  Sender: FDA-Public Use
  Company Number: US-PFIZER INC-PV202300021508

PATIENT
  Age: 84 Year
  Sex: Male
  Weight: 83.46 kg

DRUGS (2)
  1. VYNDAMAX [Suspect]
     Active Substance: TAFAMIDIS
     Dosage: 61 MG
  2. ATORVASTATIN [Concomitant]
     Active Substance: ATORVASTATIN
     Indication: Hypotension
     Dosage: UNK

REACTIONS (3)
  - Peripheral swelling [Unknown]
  - Nasopharyngitis [Unknown]
  - Intentional dose omission [Unknown]
